FAERS Safety Report 13032041 (Version 3)
Quarter: 2017Q2

REPORT INFORMATION
  Report Type: Other
  Country: FR (occurrence: FR)
  Receive Date: 20161215
  Receipt Date: 20170522
  Transmission Date: 20170830
  Serious: Yes (Other)
  Sender: FDA-Public Use
  Company Number: FR-CELLTRION INC.-2016FR011486

PATIENT

DRUGS (3)
  1. INFLECTRA [Suspect]
     Active Substance: INFLIXIMAB-DYYB
     Indication: COLITIS
     Dosage: 5 MG/KG, CYCLIC (ONCE EVERY 8 WEEKS)
     Route: 042
     Dates: start: 20151116, end: 20160224
  2. IMUREL /00001501/ [Concomitant]
     Active Substance: AZATHIOPRINE SODIUM
     Dosage: UNK
     Route: 048
     Dates: start: 20151130
  3. HUMIRA [Suspect]
     Active Substance: ADALIMUMAB
     Indication: COLITIS
     Dosage: 40 MG, CYCLIC ,EVERY 2 WEEKS
     Route: 058
     Dates: start: 20160325

REACTIONS (6)
  - Hidradenitis [Recovering/Resolving]
  - Nasal crusting [Not Recovered/Not Resolved]
  - Rhinitis [Not Recovered/Not Resolved]
  - Angular cheilitis [Not Recovered/Not Resolved]
  - Bacterial disease carrier [Unknown]
  - Folliculitis [Recovering/Resolving]

NARRATIVE: CASE EVENT DATE: 201601
